FAERS Safety Report 24705744 (Version 1)
Quarter: 2024Q4

REPORT INFORMATION
  Report Type: Spontaneous
  Country: US (occurrence: None)
  Receive Date: 20241205
  Receipt Date: 20241205
  Transmission Date: 20250114
  Serious: Yes (Death)
  Sender: Public
  Company Number: None

PATIENT
  Age: 61 Year
  Sex: Female
  Weight: 76 kg

DRUGS (10)
  1. MYCOPHENOLIC ACID [Suspect]
     Active Substance: MYCOPHENOLIC ACID
     Indication: Renal transplant
     Dosage: 750 MG BID ORAL?
     Route: 048
     Dates: start: 20220307, end: 20241120
  2. TACROLIMUS [Suspect]
     Active Substance: TACROLIMUS
     Indication: Renal transplant
     Dosage: 1.5 MG BID ORAL?
     Route: 048
     Dates: start: 20240307, end: 20241120
  3. LISINOPRIL [Concomitant]
     Active Substance: LISINOPRIL
  4. FLUCONAZOLE [Concomitant]
     Active Substance: FLUCONAZOLE
  5. ALBUTEROL SULFATE [Concomitant]
     Active Substance: ALBUTEROL SULFATE
  6. AZITHROMYCIN [Concomitant]
     Active Substance: AZITHROMYCIN
  7. LEVOCETIRIZINE [Concomitant]
     Active Substance: LEVOCETIRIZINE
  8. LOVASTATIN [Concomitant]
     Active Substance: LOVASTATIN
  9. METFORMIN HYDROCHLORIDE [Concomitant]
     Active Substance: METFORMIN HYDROCHLORIDE
  10. omepr^azole [Concomitant]

REACTIONS (1)
  - Death [None]

NARRATIVE: CASE EVENT DATE: 20241120
